FAERS Safety Report 5457648-5 (Version None)
Quarter: 2007Q3

REPORT INFORMATION
  Report Type: 
  Country: None (occurrence: None)
  Receive Date: 20070918
  Receipt Date: 20070906
  Transmission Date: 20080115
  Serious: Yes (Other)
  Sender: FDA-Public Use
  Company Number: US-PFIZER INC-2007075273

PATIENT

DRUGS (1)
  1. LYRICA [Suspect]

REACTIONS (1)
  - DRUG SCREEN POSITIVE [None]
